FAERS Safety Report 9461421 (Version 2)
Quarter: 2013Q4

REPORT INFORMATION
  Report Type: Spontaneous
  Country: IT (occurrence: IT)
  Receive Date: 20130816
  Receipt Date: 20131119
  Transmission Date: 20140711
  Serious: Yes (Other)
  Sender: FDA-Public Use
  Company Number: IT-MYLANLABS-2013S1017530

PATIENT
  Age: 65 Year
  Sex: Female
  Weight: 78 kg

DRUGS (3)
  1. IRINOTECAN HYDROCHLORIDE TRIHYDRATE [Suspect]
     Indication: ADENOCARCINOMA OF COLON
     Dosage: CYCLIC
     Route: 042
     Dates: start: 20130530, end: 20130530
  2. EUTIROX [Concomitant]
     Indication: AUTOIMMUNE THYROIDITIS
  3. ERBITUX [Concomitant]
     Indication: AUTOIMMUNE THYROIDITIS
     Dates: start: 20130411, end: 20130711

REACTIONS (1)
  - Infusion related reaction [Recovered/Resolved]
